FAERS Safety Report 5608270-9 (Version None)
Quarter: 2008Q1

REPORT INFORMATION
  Report Type: 
  Country: None (occurrence: None)
  Receive Date: 20080130
  Receipt Date: 20080121
  Transmission Date: 20080703
  Serious: Yes (Hospitalization)
  Sender: FDA-Public Use
  Company Number: KR-ELI_LILLY_AND_COMPANY-KR200801000568

PATIENT
  Age: 68 Year
  Sex: Male
  Weight: 53 kg

DRUGS (20)
  1. PEMETREXED [Suspect]
     Indication: NON-SMALL CELL LUNG CANCER
     Dosage: 500 MG/M2, DAY 1 EVERY 3 WEEKS
     Route: 042
     Dates: start: 20071213
  2. DEXAMETHASONE TAB [Concomitant]
     Indication: SUPPLEMENTATION THERAPY
     Dosage: 4 MG, UNKNOWN
     Route: 042
     Dates: start: 20071213, end: 20071213
  3. DEXAMETHASONE TAB [Concomitant]
     Dosage: 4 MG, EVERY 6 HRS
     Route: 042
  4. FOLIC ACID [Concomitant]
     Indication: SUPPLEMENTATION THERAPY
     Dosage: 1 MG, UNKNOWN
     Route: 048
     Dates: start: 20071208
  5. VITAMIN B-12 [Concomitant]
     Indication: SUPPLEMENTATION THERAPY
     Dosage: 1 MG, UNKNOWN
     Route: 030
     Dates: start: 20071208, end: 20071208
  6. HOKUNALIN [Concomitant]
     Indication: CHRONIC OBSTRUCTIVE PULMONARY DISEASE
     Dosage: 2 MG, DAILY (1/D)
     Route: 065
     Dates: start: 20050916
  7. CARDURA [Concomitant]
     Indication: BENIGN PROSTATIC HYPERPLASIA
     Dosage: 4 MG, DAILY (1/D)
     Route: 065
     Dates: start: 20060222
  8. MEGESTROL [Concomitant]
     Indication: ANOREXIA
     Dosage: 20 ML, DAILY (1/D)
     Route: 065
     Dates: start: 20071201
  9. MAGNESIUM HYDROXIDE TAB [Concomitant]
     Indication: CONSTIPATION
     Dosage: 500 MG, 3/D
     Route: 065
     Dates: start: 20071006
  10. MUCOSTA [Concomitant]
     Indication: GASTRITIS PROPHYLAXIS
     Dosage: 100 MG, 3/D
     Route: 065
     Dates: start: 20071203
  11. MS CONTIN [Concomitant]
     Indication: PAIN
     Dosage: 30 MG, 2/D
     Route: 065
     Dates: start: 20071203
  12. SPIRIVA [Concomitant]
     Indication: CHRONIC OBSTRUCTIVE PULMONARY DISEASE
     Dosage: 1 D/F, DAILY (1/D) ONE PUFF
     Route: 065
     Dates: start: 20050603
  13. SYMBICORT [Concomitant]
     Indication: CHRONIC OBSTRUCTIVE PULMONARY DISEASE
     Dosage: 1 D/F, 2/D(ONE PUFF)
     Route: 065
     Dates: start: 20060413
  14. ERDOSTEINE [Concomitant]
     Indication: CHRONIC OBSTRUCTIVE PULMONARY DISEASE
     Dosage: 300 MG, 2/D
     Route: 065
     Dates: start: 20050916
  15. TRIDOL [Concomitant]
     Indication: PAIN
     Dosage: 50 MG, 3/D
     Route: 065
     Dates: start: 20071228
  16. LEVOSULPIRIDE [Concomitant]
     Indication: DYSPEPSIA
     Dosage: 25 MG, 3/D
     Route: 065
     Dates: start: 20071203, end: 20071225
  17. ALLEGRA [Concomitant]
     Indication: CHRONIC OBSTRUCTIVE PULMONARY DISEASE
     Dosage: 120 MG, DAILY (1/D)
     Route: 065
     Dates: start: 20060303, end: 20071221
  18. PHAZYME [Concomitant]
     Indication: DYSPEPSIA
     Dosage: 1 D/F, 3/D (1 T)
     Route: 065
     Dates: start: 20071211, end: 20071225
  19. PHENIRAMINE [Concomitant]
     Indication: PROPHYLAXIS
     Dosage: 45.5 MG, 2/D
     Route: 065
     Dates: start: 20071213, end: 20071213
  20. ONDANSETRON [Concomitant]
     Indication: PROPHYLAXIS OF NAUSEA AND VOMITING
     Dosage: 8 MG, 2/D
     Route: 065
     Dates: start: 20071213, end: 20071213

REACTIONS (2)
  - PNEUMONIA [None]
  - STARVATION [None]
